FAERS Safety Report 6978804-0 (Version None)
Quarter: 2010Q3

REPORT INFORMATION
  Report Type: 
  Country: None (occurrence: None)
  Receive Date: 20100913
  Receipt Date: 20100903
  Transmission Date: 20110219
  Serious: Yes (Hospitalization)
  Sender: FDA-Public Use
  Company Number: NL-ABBOTT-10P-114-0668368-00

PATIENT
  Age: 23 Year
  Sex: Female

DRUGS (2)
  1. LEVOTHYROXINE [Suspect]
     Indication: HYPOTHYROIDISM
     Dosage: 25MG (100 TABLETS X 250MCG)
  2. LEVOTHYROXINE [Suspect]
     Indication: THYROIDECTOMY

REACTIONS (3)
  - COAGULOPATHY [None]
  - FIBRINOLYSIS ABNORMAL [None]
  - OVERDOSE [None]
